FAERS Safety Report 7560373-8 (Version None)
Quarter: 2011Q2

REPORT INFORMATION
  Report Type: 
  Country: None (occurrence: None)
  Receive Date: 20110621
  Receipt Date: 20110616
  Transmission Date: 20111010
  Serious: Yes (Disabling, Other)
  Sender: FDA-Public Use
  Company Number: RO-ABBOTT-11P-135-0733112-00

PATIENT
  Sex: Male
  Weight: 76 kg

DRUGS (5)
  1. DICLOFENAC SODIUM [Concomitant]
     Indication: RHEUMATOID ARTHRITIS
     Route: 048
     Dates: start: 19870101
  2. ARAVA [Concomitant]
     Indication: RHEUMATOID ARTHRITIS
     Route: 048
     Dates: start: 20090101
  3. HUMIRA [Suspect]
     Indication: RHEUMATOID ARTHRITIS
     Route: 058
     Dates: start: 20100825, end: 20110618
  4. NEBIVOLOL HCL [Concomitant]
     Indication: HYPERTENSION
     Route: 048
     Dates: start: 20080101
  5. RANITIDINE [Concomitant]
     Indication: GASTRITIS
     Route: 048
     Dates: start: 19870101

REACTIONS (11)
  - INJECTION SITE DISCOLOURATION [None]
  - INJECTION SITE REACTION [None]
  - BURNING SENSATION [None]
  - FATIGUE [None]
  - INJECTION SITE INDURATION [None]
  - PRURITUS [None]
  - INJECTION SITE ERYTHEMA [None]
  - INJECTION SITE PAPULE [None]
  - INJECTION SITE PUSTULE [None]
  - INJECTION SITE MACULE [None]
  - PAIN [None]
